FAERS Safety Report 17980723 (Version 1)
Quarter: 2020Q3

REPORT INFORMATION
  Report Type: Spontaneous
  Country: CA (occurrence: CA)
  Receive Date: 20200704
  Receipt Date: 20200704
  Transmission Date: 20201103
  Serious: Yes (Other)
  Sender: FDA-Public Use
  Company Number: CA-TEVA-2020-CA-1796334

PATIENT
  Age: 23 Year
  Sex: Male

DRUGS (8)
  1. CLOZAPINE. [Suspect]
     Active Substance: CLOZAPINE
     Indication: PRODUCT USED FOR UNKNOWN INDICATION
     Dosage: 425 MILLIGRAM DAILY;
     Route: 065
  2. SODIUM VALPROATE [Concomitant]
     Active Substance: VALPROATE SODIUM
     Indication: SCHIZOPHRENIA
     Route: 065
  3. GABAPENTIN. [Suspect]
     Active Substance: GABAPENTIN
     Indication: INSOMNIA
     Dosage: 300 MILLIGRAM DAILY;
     Route: 065
  4. CLOZAPINE. [Concomitant]
     Active Substance: CLOZAPINE
     Indication: SCHIZOPHRENIA
     Route: 065
  5. PROCYCLIDINE HCL [Suspect]
     Active Substance: PROCYCLIDINE HYDROCHLORIDE
     Indication: PRODUCT USED FOR UNKNOWN INDICATION
     Dosage: 10 MILLIGRAM DAILY;
     Route: 065
  6. DIVALPROEX SODIUM. [Suspect]
     Active Substance: DIVALPROEX SODIUM
     Indication: AFFECTIVE DISORDER
     Dosage: 1000 MILLIGRAM DAILY;
     Route: 065
  7. FLUOXETINE [Concomitant]
     Active Substance: FLUOXETINE HYDROCHLORIDE
     Indication: OBSESSIVE-COMPULSIVE SYMPTOM
     Dosage: 30 MILLIGRAM DAILY;
     Route: 065
  8. PROCYCLIDINE [Concomitant]
     Active Substance: PROCYCLIDINE
     Indication: SCHIZOPHRENIA
     Route: 065

REACTIONS (8)
  - Tachyphrenia [Recovered/Resolved]
  - Paradoxical drug reaction [Recovered/Resolved]
  - Hallucination, auditory [Recovered/Resolved]
  - Product use in unapproved indication [Recovered/Resolved]
  - Obsessive-compulsive symptom [Recovered/Resolved]
  - Paranoia [Recovered/Resolved]
  - Psychotic disorder [Recovered/Resolved]
  - Off label use [Recovered/Resolved]
